FAERS Safety Report 18279099 (Version 4)
Quarter: 2020Q4

REPORT INFORMATION
  Report Type: Spontaneous
  Country: US (occurrence: US)
  Receive Date: 20200917
  Receipt Date: 20201112
  Transmission Date: 20210113
  Serious: No
  Sender: FDA-Public Use
  Company Number: US-UNITED THERAPEUTICS-UNT-2020-013760

PATIENT
  Sex: Female
  Weight: 73.47 kg

DRUGS (4)
  1. ORENITRAM [Suspect]
     Active Substance: TREPROSTINIL
     Dosage: 7.5 MG, Q8H
     Route: 048
  2. ORENITRAM [Suspect]
     Active Substance: TREPROSTINIL
     Indication: PULMONARY ARTERIAL HYPERTENSION
     Dosage: UNK
     Route: 048
     Dates: start: 20200226
  3. ADEMPAS [Suspect]
     Active Substance: RIOCIGUAT
     Indication: PRODUCT USED FOR UNKNOWN INDICATION
     Dosage: UNK
     Route: 065
  4. ORENITRAM [Suspect]
     Active Substance: TREPROSTINIL
     Indication: PULMONARY ARTERIAL HYPERTENSION
     Dosage: UNK
     Route: 048

REACTIONS (13)
  - Gastrooesophageal reflux disease [Unknown]
  - Swelling [Unknown]
  - Hepatomegaly [Unknown]
  - Gastric dilatation [Unknown]
  - Constipation [Unknown]
  - Abdominal distension [Unknown]
  - Generalised oedema [Unknown]
  - Blood magnesium decreased [Unknown]
  - Weight fluctuation [Unknown]
  - Palpitations [Unknown]
  - Anaemia [Unknown]
  - Oesophageal dysplasia [Unknown]
  - Splenomegaly [Unknown]

NARRATIVE: CASE EVENT DATE: 2020
